FAERS Safety Report 8896034 (Version 6)
Quarter: 2013Q1

REPORT INFORMATION
  Report Type: Spontaneous
  Country: TW (occurrence: TW)
  Receive Date: 20121108
  Receipt Date: 20130122
  Transmission Date: 20140127
  Serious: Yes (Life-Threatening, Hospitalization, Disabling, Other)
  Sender: FDA-Public Use
  Company Number: PHHY2012TW102351

PATIENT
  Age: 53 Year
  Sex: Female

DRUGS (3)
  1. TASIGNA [Suspect]
     Indication: CHRONIC MYELOID LEUKAEMIA
     Dosage: 800 MG,DAILY
     Route: 048
     Dates: start: 20120822, end: 20120914
  2. TASIGNA [Suspect]
     Dosage: 700 MG, DAILY
     Dates: start: 20120915, end: 20121006
  3. SIBELIUM [Concomitant]
     Dates: start: 20121207, end: 20121220

REACTIONS (2)
  - Platelet count decreased [Recovering/Resolving]
  - Road traffic accident [Recovered/Resolved]
